FAERS Safety Report 7804062-0 (Version None)
Quarter: 2011Q4

REPORT INFORMATION
  Report Type: 
  Country: None (occurrence: None)
  Receive Date: 20111010
  Receipt Date: 20110709
  Transmission Date: 20120403
  Serious: No
  Sender: FDA-Public Use
  Company Number: US-BAYER-2011-060412

PATIENT
  Age: 55 Year
  Sex: Male

DRUGS (7)
  1. POTASSIUM CHLORIDE [Concomitant]
     Dosage: 20 NOT APPL., QD
  2. NEXAVAR [Suspect]
     Indication: HEPATIC NEOPLASM MALIGNANT
     Dosage: 400 MG, BID
     Route: 048
     Dates: start: 20110121, end: 20110705
  3. ZOFRAN [Concomitant]
     Dosage: 8 MG, TIW
  4. OMEPRAZOLE [Concomitant]
     Dosage: 20 MG, QD
  5. LEVOTHYROXINE SODIUM [Concomitant]
     Dosage: 50 ?G, QD
  6. FUROSEMIDE [Concomitant]
     Dosage: 20 MG, QD
  7. VERAPAMIL [Concomitant]
     Dosage: 180 MG, QD

REACTIONS (3)
  - OROPHARYNGEAL PAIN [None]
  - BLISTER [None]
  - CHEST DISCOMFORT [None]
